FAERS Safety Report 4928907-7 (Version None)
Quarter: 2006Q1

REPORT INFORMATION
  Report Type: 
  Country: None (occurrence: None)
  Receive Date: 20060228
  Receipt Date: 20060228
  Transmission Date: 20060701
  Serious: No
  Sender: FDA-Public Use
  Company Number: None

PATIENT
  Age: 75 Year
  Sex: Female
  Weight: 77.1115 kg

DRUGS (1)
  1. BIAXIN [Suspect]
     Indication: BRONCHITIS
     Dates: start: 20050924, end: 20051004

REACTIONS (1)
  - CEREBROVASCULAR ACCIDENT [None]
